FAERS Safety Report 17441070 (Version 1)
Quarter: 2020Q1

REPORT INFORMATION
  Report Type: Spontaneous
  Country: DK (occurrence: DK)
  Receive Date: 20200220
  Receipt Date: 20200220
  Transmission Date: 20200409
  Serious: No
  Sender: FDA-Public Use
  Company Number: DK-ELI_LILLY_AND_COMPANY-DK202001010243

PATIENT
  Age: 40 Year
  Sex: Female

DRUGS (3)
  1. QUETIAPINE. [Concomitant]
     Active Substance: QUETIAPINE
     Dosage: UNK, UNKNOWN
     Dates: start: 20181130
  2. QUETIAPINE. [Concomitant]
     Active Substance: QUETIAPINE
     Indication: MENTAL DISORDER
     Dosage: 25 MG, PRN
     Route: 048
     Dates: start: 20170411, end: 20181128
  3. CYMBALTA [Suspect]
     Active Substance: DULOXETINE HYDROCHLORIDE
     Indication: DEPRESSION
     Dosage: STRENGTH: 30 MG, DOSAGE: VARYING
     Route: 048
     Dates: start: 201809

REACTIONS (6)
  - Trismus [Unknown]
  - Hepatic enzyme increased [Unknown]
  - Hyperhidrosis [Unknown]
  - Gingivitis [Unknown]
  - Pain in jaw [Unknown]
  - Dental caries [Unknown]

NARRATIVE: CASE EVENT DATE: 201810
